FAERS Safety Report 10272455 (Version 1)
Quarter: 2014Q2

REPORT INFORMATION
  Report Type: Spontaneous
  Country: US (occurrence: None)
  Receive Date: 20140630
  Receipt Date: 20140630
  Transmission Date: 20141212
  Serious: No
  Sender: FDA-Public Use
  Company Number: None

PATIENT
  Age: 64 Year
  Sex: 0
  Weight: 58.97 kg

DRUGS (2)
  1. ADEFOVIR [Suspect]
     Route: 048
  2. TACROLIMUS [Suspect]
     Indication: LIVER TRANSPLANT
     Route: 048

REACTIONS (5)
  - Pain [None]
  - Arthralgia [None]
  - Dry skin [None]
  - Pruritus [None]
  - Asthenia [None]
